FAERS Safety Report 25825729 (Version 1)
Quarter: 2025Q3

REPORT INFORMATION
  Report Type: Spontaneous
  Country: EU (occurrence: EU)
  Receive Date: 20250919
  Receipt Date: 20250919
  Transmission Date: 20251021
  Serious: No
  Sender: MYLAN
  Company Number: EU-MYLANLABS-2025M1077951

PATIENT

DRUGS (4)
  1. ARIXTRA [Suspect]
     Active Substance: FONDAPARINUX SODIUM
     Indication: Product used for unknown indication
  2. ARIXTRA [Suspect]
     Active Substance: FONDAPARINUX SODIUM
     Route: 065
  3. ARIXTRA [Suspect]
     Active Substance: FONDAPARINUX SODIUM
     Route: 065
  4. ARIXTRA [Suspect]
     Active Substance: FONDAPARINUX SODIUM

REACTIONS (2)
  - Needle issue [Unknown]
  - Product quality issue [Unknown]
